FAERS Safety Report 18807117 (Version 1)
Quarter: 2021Q1

REPORT INFORMATION
  Report Type: Spontaneous
  Country: AT (occurrence: AT)
  Receive Date: 20210129
  Receipt Date: 20210129
  Transmission Date: 20210419
  Serious: Yes (Other)
  Sender: FDA-Public Use
  Company Number: AT-BAYER-2021-033263

PATIENT
  Age: 52 Year
  Sex: Female

DRUGS (1)
  1. MIRENA [Suspect]
     Active Substance: LEVONORGESTREL
     Dosage: 20 ?G PER DAY CONTINUOUSLY
     Route: 015
     Dates: start: 201001, end: 20210112

REACTIONS (5)
  - Post procedural haemorrhage [Recovered/Resolved]
  - Complication of device removal [None]
  - Amenorrhoea [None]
  - Uterine haematoma [None]
  - Device use issue [None]

NARRATIVE: CASE EVENT DATE: 2010
